FAERS Safety Report 14965753 (Version 2)
Quarter: 2018Q2

REPORT INFORMATION
  Report Type: Spontaneous
  Country: IT (occurrence: IT)
  Receive Date: 20180602
  Receipt Date: 20180615
  Transmission Date: 20180711
  Serious: Yes (Other)
  Sender: FDA-Public Use
  Company Number: IT-AUROBINDO-AUR-APL-2018-028352

PATIENT
  Age: 68 Year
  Sex: Male

DRUGS (3)
  1. NIMESULIDE [Suspect]
     Active Substance: NIMESULIDE
     Indication: PAIN
  2. NIMESULIDE [Suspect]
     Active Substance: NIMESULIDE
     Indication: PAIN
     Dosage: IN TOTAL
     Route: 048
     Dates: start: 20170115, end: 20170115
  3. LEVOFLOXACIN FILMCOATED TABLET [Suspect]
     Active Substance: LEVOFLOXACIN
     Indication: INFECTION
     Dosage: IN TOTAL
     Route: 048
     Dates: start: 20170115, end: 20170115

REACTIONS (2)
  - Throat tightness [Recovering/Resolving]
  - Face oedema [Recovering/Resolving]

NARRATIVE: CASE EVENT DATE: 20170115
